FAERS Safety Report 4499818-9 (Version None)
Quarter: 2004Q4

REPORT INFORMATION
  Report Type: 
  Country: None (occurrence: None)
  Receive Date: 20041112
  Receipt Date: 20041111
  Transmission Date: 20050328
  Serious: Yes (Life-Threatening, Hospitalization, Disabling)
  Sender: FDA-Public Use
  Company Number: PHBS2004ES15143

PATIENT
  Age: 22 Year
  Sex: Female

DRUGS (1)
  1. SYNTOCINON [Suspect]
     Dosage: 10 IU, UNK
     Dates: start: 20041018

REACTIONS (2)
  - ASPHYXIA [None]
  - SYNCOPE VASOVAGAL [None]
